FAERS Safety Report 9808036 (Version 2)
Quarter: 2014Q1

REPORT INFORMATION
  Report Type: Spontaneous
  Country: US (occurrence: US)
  Receive Date: 20140110
  Receipt Date: 20140324
  Transmission Date: 20141002
  Serious: Yes (Other)
  Sender: FDA-Public Use
  Company Number: US-GLAXOSMITHKLINE-A1055385A

PATIENT
  Age: 79 Year
  Sex: Male

DRUGS (6)
  1. PROMACTA [Suspect]
     Indication: IMMUNE THROMBOCYTOPENIC PURPURA
     Dosage: 25MG PER DAY
     Route: 048
     Dates: start: 20130829
  2. PREDNISONE [Concomitant]
  3. ACYCLOVIR [Concomitant]
  4. TRANDOLAPRIL [Concomitant]
  5. METOPROLOL [Concomitant]
  6. LOVASTATIN [Concomitant]

REACTIONS (1)
  - Pneumonia [Not Recovered/Not Resolved]
